FAERS Safety Report 6378456-7 (Version None)
Quarter: 2009Q3

REPORT INFORMATION
  Report Type: 
  Country: None (occurrence: None)
  Receive Date: 20090928
  Receipt Date: 20090923
  Transmission Date: 20100115
  Serious: Yes (Other)
  Sender: FDA-Public Use
  Company Number: US-RB-017907-09

PATIENT
  Age: 46 Year
  Sex: Male

DRUGS (3)
  1. SUBOXONE [Suspect]
     Route: 060
     Dates: start: 20090501
  2. LORAZEPAM [Suspect]
     Indication: ANXIETY
     Dosage: TAKES MORE THAN PRESCRIBED.
     Route: 065
  3. SEROQUEL [Concomitant]
     Indication: ANXIETY
     Dosage: UNKNOWN DOSE.
     Route: 065

REACTIONS (6)
  - ANXIETY [None]
  - ASTHENIA [None]
  - DEPRESSION [None]
  - LOSS OF CONSCIOUSNESS [None]
  - MEMORY IMPAIRMENT [None]
  - OVERDOSE [None]
